FAERS Safety Report 12953094 (Version 1)
Quarter: 2016Q4

REPORT INFORMATION
  Report Type: Spontaneous
  Country: US (occurrence: US)
  Receive Date: 20161117
  Receipt Date: 20161117
  Transmission Date: 20170207
  Serious: No
  Sender: FDA-Public Use
  Company Number: US-ACTELION-A-US2016-145672

PATIENT
  Age: 77 Year
  Sex: Female

DRUGS (9)
  1. VALCHLOR [Suspect]
     Active Substance: MECHLORETHAMINE
     Indication: MYCOSIS FUNGOIDES
     Dosage: UNK 1-2 TIMES A WEEK
     Route: 061
     Dates: start: 20160801
  2. CALTRATE [Concomitant]
     Active Substance: CALCIUM CARBONATE
  3. CITRUCEL [Concomitant]
     Active Substance: METHYLCELLULOSE (4000 MPA.S)
  4. CLOBETASOL [Concomitant]
     Active Substance: CLOBETASOL
  5. FISH OIL [Concomitant]
     Active Substance: FISH OIL
  6. LISINOPRIL. [Concomitant]
     Active Substance: LISINOPRIL
  7. ESTRACE [Concomitant]
     Active Substance: ESTRADIOL
  8. LUTEIN ZEAXANTHIN [Concomitant]
  9. ECOTRIN [Concomitant]
     Active Substance: ASPIRIN

REACTIONS (2)
  - Exposure via inhalation [Unknown]
  - No adverse event [Unknown]
